FAERS Safety Report 25720134 (Version 1)
Quarter: 2025Q3

REPORT INFORMATION
  Report Type: Spontaneous
  Country: US (occurrence: US)
  Receive Date: 20250825
  Receipt Date: 20250825
  Transmission Date: 20251021
  Serious: No
  Sender: MERCK SHARP & DOHME LLC
  Company Number: US-009507513-2315752

PATIENT
  Age: 72 Year
  Sex: Female

DRUGS (2)
  1. IMIPENEM [Suspect]
     Active Substance: IMIPENEM
     Indication: Bronchiectasis
     Route: 042
  2. AMIKACIN [Concomitant]
     Active Substance: AMIKACIN

REACTIONS (2)
  - Product use in unapproved indication [Unknown]
  - No adverse event [Unknown]
